FAERS Safety Report 11405997 (Version 3)
Quarter: 2016Q1

REPORT INFORMATION
  Report Type: Spontaneous
  Country: US (occurrence: US)
  Receive Date: 20150821
  Receipt Date: 20160209
  Transmission Date: 20160525
  Serious: Yes (Other)
  Sender: FDA-Public Use
  Company Number: US-UNITED THERAPEUTICS-UNT-2015-010151

PATIENT
  Age: 11 Year
  Sex: Female
  Weight: 47.62 kg

DRUGS (16)
  1. LETAIRIS [Suspect]
     Active Substance: AMBRISENTAN
     Indication: PULMONARY HYPERTENSION
     Dosage: 10 MG, QD
     Route: 065
     Dates: start: 20140623
  2. LETAIRIS [Suspect]
     Active Substance: AMBRISENTAN
     Indication: PULMONARY HYPOPLASIA
     Dosage: 10 MG, QD
     Route: 065
  3. ZYVOX [Suspect]
     Active Substance: LINEZOLID
     Indication: EAR INFECTION
     Dosage: 3/4 A 600 MG TAB, BID
     Route: 048
     Dates: start: 201507
  4. ASPIRIN                            /00002701/ [Concomitant]
     Active Substance: ASPIRIN
     Indication: PRODUCT USED FOR UNKNOWN INDICATION
  5. ORENITRAM [Suspect]
     Active Substance: TREPROSTINIL
     Indication: PULMONARY HYPERTENSION
     Dosage: 3 MG, TID
     Route: 048
     Dates: start: 20150128
  6. ORENITRAM [Suspect]
     Active Substance: TREPROSTINIL
     Dosage: 6.5 MG, Q8H
     Route: 048
  7. ORENITRAM [Suspect]
     Active Substance: TREPROSTINIL
     Dosage: UNK
  8. LETAIRIS [Suspect]
     Active Substance: AMBRISENTAN
     Indication: CONGENITAL DIAPHRAGMATIC HERNIA
     Dosage: 10 MG, QD
     Route: 065
  9. ADVAIR HFA [Concomitant]
     Active Substance: FLUTICASONE PROPIONATE\SALMETEROL XINAFOATE
     Indication: PRODUCT USED FOR UNKNOWN INDICATION
  10. ORENITRAM [Suspect]
     Active Substance: TREPROSTINIL
     Indication: PULMONARY ARTERIAL HYPERTENSION
     Dosage: 2.5 MG, TID
     Route: 048
  11. ORENITRAM [Suspect]
     Active Substance: TREPROSTINIL
     Dosage: 3.75 MG, TID
     Route: 048
  12. ORENITRAM [Suspect]
     Active Substance: TREPROSTINIL
     Dosage: UNK
     Route: 048
  13. ORENITRAM [Suspect]
     Active Substance: TREPROSTINIL
     Dosage: 5.5 MG, TID
  14. ADCIRCA [Concomitant]
     Active Substance: TADALAFIL
     Indication: PRODUCT USED FOR UNKNOWN INDICATION
  15. LETAIRIS [Suspect]
     Active Substance: AMBRISENTAN
     Indication: PULMONARY ARTERIAL HYPERTENSION
  16. ORENITRAM [Suspect]
     Active Substance: TREPROSTINIL
     Dosage: 8.5 MG, TID
     Route: 048

REACTIONS (7)
  - Ear infection staphylococcal [Not Recovered/Not Resolved]
  - Migraine [Recovered/Resolved]
  - Chest pain [Unknown]
  - Vomiting [Recovered/Resolved]
  - Dyspnoea [Not Recovered/Not Resolved]
  - Headache [Unknown]
  - Pulmonary arterial pressure increased [Not Recovered/Not Resolved]

NARRATIVE: CASE EVENT DATE: 2015
